FAERS Safety Report 24769926 (Version 1)
Quarter: 2024Q4

REPORT INFORMATION
  Report Type: Spontaneous
  Country: CO (occurrence: CO)
  Receive Date: 20241224
  Receipt Date: 20241224
  Transmission Date: 20250115
  Serious: Yes (Other)
  Sender: SANDOZ
  Company Number: CO-002147023-NVSC2021CO097939

PATIENT
  Age: 60 Year
  Sex: Female
  Weight: 74 kg

DRUGS (9)
  1. COSENTYX [Suspect]
     Active Substance: SECUKINUMAB
     Dosage: 150 MG, QMO
     Route: 058
     Dates: start: 20210422
  2. COSENTYX [Suspect]
     Active Substance: SECUKINUMAB
     Dosage: 150 MG, QMO
     Route: 058
     Dates: start: 20210520
  3. COSENTYX [Suspect]
     Active Substance: SECUKINUMAB
     Dosage: 150 MG, QMO
     Route: 058
     Dates: start: 20160418
  4. COSENTYX [Suspect]
     Active Substance: SECUKINUMAB
     Dosage: 150 MG, QMO
     Route: 058
  5. COSENTYX [Suspect]
     Active Substance: SECUKINUMAB
     Indication: Ankylosing spondylitis
     Dosage: 150 MG, QMO (2 YEARS AGO)
     Route: 058
  6. LOSARTAN [Suspect]
     Active Substance: LOSARTAN
     Indication: Hypertension
     Dosage: 100 MG, Q12H (10 YEARS AGO)
     Route: 048
  7. CALCIUM [Concomitant]
     Active Substance: CALCIUM
     Indication: Bone disorder
     Dosage: 1 DOSAGE FORM, QD (44 YEARS AGO)
     Route: 048
  8. MINERALS\VITAMINS [Concomitant]
     Active Substance: MINERALS\VITAMINS
     Indication: Bone disorder
     Dosage: 1 DOSAGE FORM, QD (44 YEARS AGO)
     Route: 048
  9. FOLIC ACID [Concomitant]
     Active Substance: FOLIC ACID
     Indication: Bone disorder
     Dosage: 1 DOSAGE FORM, QD (44 YEARS AGO)
     Route: 048

REACTIONS (13)
  - Posture abnormal [Unknown]
  - Illness [Unknown]
  - Arthritis [Unknown]
  - Peripheral swelling [Unknown]
  - Inflammation [Recovered/Resolved]
  - Inflammation [Unknown]
  - Arthralgia [Unknown]
  - Pain in extremity [Unknown]
  - Influenza [Unknown]
  - Insomnia [Recovering/Resolving]
  - Spinal disorder [Unknown]
  - Body height decreased [Unknown]
  - Off label use [Unknown]

NARRATIVE: CASE EVENT DATE: 20210420
